FAERS Safety Report 21745897 (Version 1)
Quarter: 2022Q4

REPORT INFORMATION
  Report Type: Spontaneous
  Country: CA (occurrence: CA)
  Receive Date: 20221219
  Receipt Date: 20221219
  Transmission Date: 20230113
  Serious: Yes (Death, Life-Threatening, Hospitalization, Other)
  Sender: FDA-Public Use
  Company Number: CA-AUROBINDO-AUR-APL-2022-052611

PATIENT
  Age: 22 Year
  Sex: Female

DRUGS (28)
  1. OLANZAPINE [Suspect]
     Active Substance: OLANZAPINE
     Indication: Vomiting
     Dosage: 5 MILLIGRAM, ONCE A DAY
     Route: 065
  2. OLANZAPINE [Suspect]
     Active Substance: OLANZAPINE
     Indication: Nausea
     Dosage: UNK
     Route: 048
  3. OLANZAPINE [Suspect]
     Active Substance: OLANZAPINE
     Indication: Electrocardiogram QT prolonged
     Dosage: UNK
     Route: 042
  4. OLANZAPINE [Suspect]
     Active Substance: OLANZAPINE
     Indication: Cyclic vomiting syndrome
     Dosage: 8 MILLIGRAM, ONCE A DAY
     Route: 065
  5. OLANZAPINE [Suspect]
     Active Substance: OLANZAPINE
     Indication: Cannabinoid hyperemesis syndrome
  6. OLANZAPINE [Suspect]
     Active Substance: OLANZAPINE
     Indication: Anxiety
  7. HALOPERIDOL [Suspect]
     Active Substance: HALOPERIDOL
     Indication: Nausea
     Dosage: UNK
     Route: 065
  8. HALOPERIDOL [Suspect]
     Active Substance: HALOPERIDOL
     Indication: Cyclic vomiting syndrome
     Dosage: UNK
     Route: 042
  9. HALOPERIDOL [Suspect]
     Active Substance: HALOPERIDOL
     Indication: Cannabinoid hyperemesis syndrome
     Dosage: UNK
     Route: 048
  10. HALOPERIDOL [Suspect]
     Active Substance: HALOPERIDOL
     Indication: Anxiety
  11. HALOPERIDOL [Suspect]
     Active Substance: HALOPERIDOL
     Indication: Electrocardiogram QT prolonged
  12. BORIC ACID [Concomitant]
     Active Substance: BORIC ACID
     Indication: Product used for unknown indication
     Dosage: UNK
     Route: 065
  13. CANNABIS SATIVA FLOWERING TOP [Concomitant]
     Active Substance: CANNABIS SATIVA FLOWERING TOP
     Indication: Product used for unknown indication
     Dosage: UNK
     Route: 065
  14. DIMENHYDRINATE [Concomitant]
     Active Substance: DIMENHYDRINATE
     Indication: Vomiting
     Dosage: 50 MILLIGRAM
     Route: 065
  15. DIMENHYDRINATE [Concomitant]
     Active Substance: DIMENHYDRINATE
     Indication: Nausea
  16. GRAVOL [Concomitant]
     Active Substance: DIMENHYDRINATE
     Indication: Nausea
     Dosage: UNK
     Route: 065
  17. GRAVOL [Concomitant]
     Active Substance: DIMENHYDRINATE
     Indication: Cyclic vomiting syndrome
     Dosage: 50 MILLIGRAM
     Route: 048
  18. GRAVOL [Concomitant]
     Active Substance: DIMENHYDRINATE
     Indication: Cannabinoid hyperemesis syndrome
  19. KETOROLAC [Concomitant]
     Active Substance: KETOROLAC TROMETHAMINE
     Indication: Vomiting
     Dosage: UNK
     Route: 065
  20. LORAZEPAM [Concomitant]
     Active Substance: LORAZEPAM
     Indication: Nausea
     Dosage: UNK
     Route: 065
  21. LORAZEPAM [Concomitant]
     Active Substance: LORAZEPAM
     Indication: Cyclic vomiting syndrome
  22. LORAZEPAM [Concomitant]
     Active Substance: LORAZEPAM
     Indication: Cannabinoid hyperemesis syndrome
  23. LORAZEPAM [Concomitant]
     Active Substance: LORAZEPAM
     Indication: Anxiety
  24. METOCLOPRAMIDE [Concomitant]
     Active Substance: METOCLOPRAMIDE
     Indication: Vomiting
     Dosage: UNK
     Route: 065
  25. SODIUM CHLORIDE [Concomitant]
     Active Substance: SODIUM CHLORIDE
     Indication: Fluid replacement
     Dosage: UNK
     Route: 065
  26. SODIUM CHLORIDE [Concomitant]
     Active Substance: SODIUM CHLORIDE
     Indication: Drug therapy
  27. POTASSIUM PHOSPHATE, DIBASIC [Concomitant]
     Active Substance: POTASSIUM PHOSPHATE, DIBASIC
     Indication: Vomiting
     Dosage: UNK
     Route: 065
  28. POTASSIUM PHOSPHATE, DIBASIC [Concomitant]
     Active Substance: POTASSIUM PHOSPHATE, DIBASIC
     Indication: Drug therapy
     Dosage: UNK
     Route: 042

REACTIONS (23)
  - Blood sodium decreased [Fatal]
  - Apallic syndrome [Fatal]
  - Arrhythmia [Fatal]
  - Blood creatinine increased [Fatal]
  - Blood phosphorus decreased [Fatal]
  - Bradycardia [Fatal]
  - Brain death [Fatal]
  - Brain injury [Fatal]
  - Cardiac arrest [Fatal]
  - Cardio-respiratory arrest [Fatal]
  - Electrocardiogram QT prolonged [Fatal]
  - Hypertension [Fatal]
  - Hypokalaemia [Fatal]
  - Hypoxic-ischaemic encephalopathy [Fatal]
  - Mucosal dryness [Fatal]
  - Myocardial reperfusion injury [Fatal]
  - Pneumonia [Fatal]
  - Pulmonary embolism [Fatal]
  - Pulmonary oedema [Fatal]
  - Torsade de pointes [Fatal]
  - Ventricular arrhythmia [Fatal]
  - Ventricular fibrillation [Fatal]
  - Off label use [Fatal]
